FAERS Safety Report 7810786-1 (Version None)
Quarter: 2011Q4

REPORT INFORMATION
  Report Type: 
  Country: None (occurrence: None)
  Receive Date: 20111011
  Receipt Date: 20110926
  Transmission Date: 20120403
  Serious: Yes (Other)
  Sender: FDA-Public Use
  Company Number: 1000015970

PATIENT
  Age: 39 Year
  Sex: Male

DRUGS (3)
  1. ESCITALOPRAM [Suspect]
     Indication: DEPRESSION
     Dosage: 20 MG (20 MG,1 IN 1 D),ORAL
     Route: 048
  2. ESCITALOPRAM [Suspect]
     Indication: DEPRESSION
     Dosage: 10 MG (10 MG,1 IN 1 D),ORAL
     Route: 048
  3. CLONAZEPAM [Concomitant]

REACTIONS (10)
  - FEELINGS OF WORTHLESSNESS [None]
  - ISCHAEMIC STROKE [None]
  - DISTURBANCE IN ATTENTION [None]
  - SPEECH DISORDER [None]
  - FATIGUE [None]
  - DEPRESSED MOOD [None]
  - FEELING OF DESPAIR [None]
  - HEADACHE [None]
  - DROOLING [None]
  - SUPRANUCLEAR PALSY [None]
